FAERS Safety Report 9422829 (Version 4)
Quarter: 2013Q4

REPORT INFORMATION
  Report Type: Report from Study
  Country: US (occurrence: US)
  Receive Date: 20130726
  Receipt Date: 20131125
  Transmission Date: 20140711
  Serious: Yes (Hospitalization)
  Sender: FDA-Public Use
  Company Number: US-PFIZER INC-2013210728

PATIENT
  Age: 44 Year
  Sex: Male
  Weight: 87.5 kg

DRUGS (11)
  1. CRIZOTINIB [Suspect]
     Indication: NON-SMALL CELL LUNG CANCER
     Dosage: 250 MG, TWICE DAILY CONTINUOUS
     Route: 048
     Dates: start: 20100803
  2. TESTOSTERONE CIPIONATE [Suspect]
     Indication: BLOOD TESTOSTERONE DECREASED
     Dosage: 200 MG/ML, CYCLIC, EVERY 14 DAYS, ROUTE: INJECTION
     Dates: start: 20130605
  3. OXYCODONE [Concomitant]
     Indication: MUSCLE SPASMS
     Dosage: 5 MG, AS NEEDED
     Route: 048
     Dates: start: 20110626
  4. ALBUTEROL [Concomitant]
     Indication: ASTHMA
     Dosage: 4 PUFFS, FOUR TIMES A DAY AS NEEDED, ROUTE: INHALLED
     Route: 055
     Dates: start: 1990
  5. SYMBICORT [Concomitant]
     Indication: ASTHMA
     Dosage: 2 PUFFS, TWICE DAILY, ROUTE: INHALLED
     Route: 055
     Dates: start: 2008
  6. ZYRTEC [Concomitant]
     Indication: HYPERSENSITIVITY
     Dosage: 5 MG, 1X/DAY
     Route: 048
     Dates: start: 2008
  7. PRILOSEC [Concomitant]
     Indication: GASTROOESOPHAGEAL REFLUX DISEASE
     Dosage: 20 MG, 1X/DAY AT BEDTIME
     Route: 048
     Dates: start: 2008
  8. COMPAZINE [Concomitant]
     Indication: NAUSEA
     Dosage: 10 MG, EVERY 8 HOURS AS NEEDED
     Route: 048
     Dates: start: 200911
  9. ONDANSETRON [Concomitant]
     Indication: NAUSEA
     Dosage: 8 MG, AS NEEDED
     Route: 048
     Dates: start: 20100810
  10. LORAZEPAM [Concomitant]
     Indication: NAUSEA
     Dosage: 1 MG, AT BEDTIME
     Route: 048
     Dates: start: 20130313
  11. FLEXERIL [Concomitant]
     Indication: MUSCLE SPASMS
     Dosage: 5 MG, FOUR TIMES A DAY, AS NEEDED
     Route: 048
     Dates: start: 20130313

REACTIONS (1)
  - Euphoric mood [Recovered/Resolved]
